FAERS Safety Report 9754410 (Version 1)
Quarter: 2013Q4

REPORT INFORMATION
  Report Type: Spontaneous
  Country: IL (occurrence: IL)
  Receive Date: 20131213
  Receipt Date: 20131213
  Transmission Date: 20140711
  Serious: Yes (Hospitalization)
  Sender: FDA-Public Use
  Company Number: IL-GLAXOSMITHKLINE-B0949400A

PATIENT
  Sex: Male
  Weight: 60 kg

DRUGS (4)
  1. BENLYSTA [Suspect]
     Indication: SYSTEMIC LUPUS ERYTHEMATOSUS
     Dosage: 120MG SEE DOSAGE TEXT
     Route: 065
  2. PLAQUENIL [Concomitant]
  3. IMURAN [Concomitant]
  4. METHOTREXATE [Concomitant]

REACTIONS (2)
  - Underdose [Unknown]
  - Drug ineffective [Unknown]
